FAERS Safety Report 6710804-8 (Version None)
Quarter: 2010Q2

REPORT INFORMATION
  Report Type: 
  Country: None (occurrence: None)
  Receive Date: 20100505
  Receipt Date: 20100428
  Transmission Date: 20101027
  Serious: Yes (Hospitalization)
  Sender: FDA-Public Use
  Company Number: US-BIOGENIDEC-2010BI014025

PATIENT
  Age: 21 Year
  Sex: Male
  Weight: 83 kg

DRUGS (6)
  1. TYSABRI [Suspect]
     Indication: CROHN'S DISEASE
     Route: 042
     Dates: start: 20100408
  2. PREDNISONE [Concomitant]
     Indication: CROHN'S DISEASE
     Route: 048
     Dates: start: 20090604, end: 20100421
  3. PREDNISONE [Concomitant]
     Route: 048
     Dates: start: 20100421
  4. CORTENEMA [Concomitant]
     Indication: CROHN'S DISEASE
     Route: 054
     Dates: start: 20100408, end: 20100415
  5. ROWASA [Concomitant]
     Indication: CROHN'S DISEASE
     Route: 054
     Dates: start: 20100408, end: 20100415
  6. URSODIOL [Concomitant]
     Indication: CHOLANGITIS SCLEROSING
     Route: 048
     Dates: start: 20091224

REACTIONS (1)
  - MIGRAINE [None]
